FAERS Safety Report 11875427 (Version 2)
Quarter: 2016Q1

REPORT INFORMATION
  Report Type: Report from Study
  Country: US (occurrence: US)
  Receive Date: 20151229
  Receipt Date: 20160112
  Transmission Date: 20160526
  Serious: Yes (Other)
  Sender: FDA-Public Use
  Company Number: US-AMGEN-USASL2015138391

PATIENT
  Age: 70 Year
  Sex: Female
  Weight: 76.64 kg

DRUGS (11)
  1. REPATHA [Suspect]
     Active Substance: EVOLOCUMAB
     Indication: TYPE V HYPERLIPIDAEMIA
     Dosage: 140 MG/ML (1 MILLILITER), Q2WK
     Route: 058
     Dates: start: 201510
  2. ESTROVEN [Concomitant]
     Active Substance: DIETARY SUPPLEMENT
     Dosage: 100 MUG (ONE TABLET), QD
     Route: 048
  3. ALPRAZOLAM. [Concomitant]
     Active Substance: ALPRAZOLAM
     Dosage: 0.5 MG (ONE TABLET), QD
     Route: 048
  4. BOTOX [Suspect]
     Active Substance: ONABOTULINUMTOXINA
     Indication: PRODUCT USED FOR UNKNOWN INDICATION
     Route: 065
  5. HYDROCHLOROTHIAZIDE. [Concomitant]
     Active Substance: HYDROCHLOROTHIAZIDE
     Dosage: 25 MG (ONE TABLET), QD
     Route: 048
  6. MELATONIN [Concomitant]
     Active Substance: MELATONIN
     Dosage: 2.5 MG, Q12H
     Route: 048
  7. COMBIGAN [Concomitant]
     Active Substance: BRIMONIDINE TARTRATE\TIMOLOL MALEATE
     Dosage: 0.2% TO 0.5%, ONE DROP, Q12H
     Route: 047
  8. LEVOTHYROXINE. [Concomitant]
     Active Substance: LEVOTHYROXINE
     Dosage: 88 MUG (ONE TABLET), QD
     Route: 048
  9. VOLTAREN [Concomitant]
     Active Substance: DICLOFENAC SODIUM
     Dosage: 1% (1 GM), QID
     Route: 061
  10. OMEPRAZOLE. [Concomitant]
     Active Substance: OMEPRAZOLE
     Dosage: 40 MG (ONE CAPSULE), BID
     Route: 048
  11. SULFACETAMIDE/PREDNISOLONE OPHTHALMIC [Concomitant]
     Dosage: 1 DROP IN BOTH EYES, Q6H
     Route: 047

REACTIONS (10)
  - Pruritus [Unknown]
  - Abdominal distension [Unknown]
  - Abdominal discomfort [Unknown]
  - Conjunctivitis [Unknown]
  - Rash generalised [Not Recovered/Not Resolved]
  - Musculoskeletal discomfort [Recovered/Resolved]
  - Oral mucosal blistering [Recovering/Resolving]
  - Gastroenteritis [Unknown]
  - Flatulence [Unknown]
  - Blood pressure increased [Recovering/Resolving]

NARRATIVE: CASE EVENT DATE: 201512
